FAERS Safety Report 16304747 (Version 1)
Quarter: 2019Q2

REPORT INFORMATION
  Report Type: Spontaneous
  Country: US (occurrence: US)
  Receive Date: 20190510
  Receipt Date: 20190510
  Transmission Date: 20190711
  Serious: Yes (Hospitalization)
  Sender: FDA-Public Use
  Company Number: None

PATIENT
  Age: 5 Year
  Sex: Male

DRUGS (6)
  1. CREON [Concomitant]
     Active Substance: PANCRELIPASE AMYLASE\PANCRELIPASE LIPASE\PANCRELIPASE PROTEASE
  2. GAVILAX [Concomitant]
     Active Substance: POLYETHYLENE GLYCOL 3350
  3. PULMOZYME [Suspect]
     Active Substance: DORNASE ALFA
     Indication: CYSTIC FIBROSIS
     Dosage: ?          OTHER ROUTE:NEBULIZED?
  4. ALBUTEROL. [Concomitant]
     Active Substance: ALBUTEROL
  5. SODIUM CHLORIDE NEBULIZED [Concomitant]
  6. ONDANSETRON [Concomitant]
     Active Substance: ONDANSETRON

REACTIONS (2)
  - Constipation [None]
  - Dehydration [None]

NARRATIVE: CASE EVENT DATE: 20190507
